FAERS Safety Report 25283999 (Version 1)
Quarter: 2025Q2

REPORT INFORMATION
  Report Type: Spontaneous
  Country: CZ (occurrence: CZ)
  Receive Date: 20250508
  Receipt Date: 20250508
  Transmission Date: 20250717
  Serious: Yes (Other)
  Sender: TAKEDA
  Company Number: CZ-TAKEDA-2025TUS034303

PATIENT
  Sex: Male

DRUGS (1)
  1. FRUZAQLA [Suspect]
     Active Substance: FRUQUINTINIB
     Indication: Colorectal cancer metastatic

REACTIONS (5)
  - Colorectal cancer metastatic [Unknown]
  - Headache [Recovering/Resolving]
  - Hypertension [Recovering/Resolving]
  - Chest pain [Unknown]
  - Ejection fraction decreased [Recovered/Resolved]
